FAERS Safety Report 7487487-5 (Version None)
Quarter: 2011Q2

REPORT INFORMATION
  Report Type: 
  Country: None (occurrence: None)
  Receive Date: 20110518
  Receipt Date: 20110510
  Transmission Date: 20111010
  Serious: Yes (Hospitalization)
  Sender: FDA-Public Use
  Company Number: US-ELI_LILLY_AND_COMPANY-US201105002616

PATIENT
  Sex: Male
  Weight: 102.49 kg

DRUGS (19)
  1. FLONASE [Concomitant]
     Indication: NASAL SEPTAL OPERATION
     Dosage: UNK, PRN
  2. BYETTA [Suspect]
     Dosage: 5 UG, BID
  3. BYSTOLIC [Concomitant]
     Dosage: 2.5 MG, QD
     Route: 048
  4. LEVOTHYROXINE SODIUM [Concomitant]
     Dosage: 100 UG, QD
     Route: 048
  5. MELOXICAM [Concomitant]
     Dosage: 15 MG, QD
     Route: 048
  6. CYMBALTA [Concomitant]
     Dosage: 60 MG, QD
     Route: 048
  7. NEXIUM [Concomitant]
     Dosage: UNK, PRN
     Route: 048
  8. BYETTA [Suspect]
     Dosage: 10 UG, BID
  9. HUMALOG [Concomitant]
     Indication: TYPE 2 DIABETES MELLITUS
     Dosage: UNK
     Route: 058
  10. ACTOS [Concomitant]
     Dosage: UNK, QD
     Route: 048
  11. NITROGLYCERIN [Concomitant]
     Dosage: UNK, PRN
     Route: 048
  12. BYETTA [Suspect]
     Indication: TYPE 2 DIABETES MELLITUS
     Dosage: 5 UG, QD
  13. BYETTA [Suspect]
     Dosage: 5 UG, BID
  14. METOPROLOL SUCCINATE [Concomitant]
     Dosage: 100 MG, QD
     Route: 048
  15. FUROSEMIDE [Concomitant]
     Indication: SWELLING
     Dosage: 40 MG, PRN
     Route: 048
  16. LANTUS [Concomitant]
     Indication: TYPE 2 DIABETES MELLITUS
     Dosage: 30 UL, EACH EVENING
     Route: 058
  17. LOSARTAN [Concomitant]
     Dosage: 100 MG, QD
     Route: 048
  18. ASPIRIN [Concomitant]
     Dosage: 81 MG, QD
     Route: 048
  19. VYTORIN [Concomitant]
     Dosage: 40 MG, QD
     Route: 048

REACTIONS (8)
  - RENAL FAILURE [None]
  - MALAISE [None]
  - CORONARY ARTERY BYPASS [None]
  - WEIGHT DECREASED [None]
  - VOMITING [None]
  - NAUSEA [None]
  - INFECTION [None]
  - SWELLING [None]
